FAERS Safety Report 6740058-8 (Version None)
Quarter: 2010Q2

REPORT INFORMATION
  Report Type: 
  Country: None (occurrence: None)
  Receive Date: 20100525
  Receipt Date: 20100512
  Transmission Date: 20101027
  Serious: Yes (Death, Other)
  Sender: FDA-Public Use
  Company Number: JP-PFIZER INC-2010033463

PATIENT
  Sex: Male
  Weight: 44 kg

DRUGS (8)
  1. SILDENAFIL CITRATE [Suspect]
     Indication: PULMONARY ARTERIAL HYPERTENSION
     Dosage: 20 MG, 3X/DAY
     Route: 048
     Dates: start: 20100308, end: 20100309
  2. SILDENAFIL CITRATE [Suspect]
     Indication: EMPHYSEMA
  3. LASIX [Concomitant]
     Route: 048
     Dates: end: 20100309
  4. FRANDOL [Concomitant]
     Route: 062
     Dates: end: 20100307
  5. MAGNESIUM OXIDE [Concomitant]
     Route: 048
     Dates: end: 20100309
  6. ZANTAC [Concomitant]
     Route: 048
     Dates: end: 20100309
  7. THEOPHYLLINE [Concomitant]
     Route: 048
     Dates: end: 20100309
  8. MUCOSOLVAN [Concomitant]
     Route: 048
     Dates: end: 20100309

REACTIONS (1)
  - INTESTINAL OBSTRUCTION [None]
